FAERS Safety Report 9366047 (Version 2)
Quarter: 2013Q3

REPORT INFORMATION
  Report Type: Spontaneous
  Country: DE (occurrence: DE)
  Receive Date: 20130625
  Receipt Date: 20130822
  Transmission Date: 20140515
  Serious: Yes (Hospitalization, Other)
  Sender: FDA-Public Use
  Company Number: DE-UCBSA-089693

PATIENT
  Age: 73 Year
  Sex: Male
  Weight: 93 kg

DRUGS (19)
  1. KEPPRA [Suspect]
     Indication: PARTIAL SEIZURES WITH SECONDARY GENERALISATION
     Route: 048
     Dates: start: 2010, end: 20101107
  2. KEPPRA [Suspect]
     Indication: GRAND MAL CONVULSION
     Route: 048
     Dates: start: 2010, end: 20101107
  3. RAMIPRIL [Concomitant]
     Dosage: STRENGTH: 2.5 MG (0.5 MG IN THE MORNING)
  4. METOPROLOL [Concomitant]
     Dosage: STRENGTH: 47.5 MG (0.5 MG IN THE MORNING AND IN THE EVENING)
  5. TOREM [Concomitant]
     Dosage: STRENGTH: 200 MG (1 IN THE MORNING AND 1 IN THE EVENING)
  6. INSPRA [Concomitant]
     Dosage: STRENGTH: 25 MG (1 IN THE MORNING)
  7. SIMVASTATIN [Concomitant]
     Dosage: STRENGTH: 20 MG (1 IN THE EVENING)
  8. ALLOPURINOL [Concomitant]
     Dosage: STRENGTH: 100MG (1 IN THE MORNING)
  9. ASS [Concomitant]
     Dosage: STRENGTH: 100 (1 IN THE EVENING)
  10. ISCOVER [Concomitant]
     Dosage: 1 IN THE MORNING
  11. RENVELA [Concomitant]
     Dosage: STRENGTH: 800 MG (2 IN THE MORNING, 2 AT NOON AND 2 IN THE EVENING)
  12. ANTI-PHOSPHATE [Concomitant]
     Dosage: 1 IN THE MORNING, 1 AT NOON AND 1 IN THE EVENING
  13. REKAWAN [Concomitant]
     Dosage: STRENGTH: 8.05 MMOL (1 IN THE MORNING), CONTROLLING OF CALIUM, AIM OF 4.5 -5 MMOL/L
  14. VIGANTOL [Concomitant]
     Dosage: STRENGTH: 30
  15. DREISAVIT [Concomitant]
     Dosage: 1 IN THE MORNING
  16. NOVALGIN [Concomitant]
     Dosage: DROPS 30 DEGREE (1 IN THE MORNING, 1 AT NOON AND 1 IN THE EVENING)
  17. ACTRAPID [Concomitant]
     Dosage: 10 IE IN THE MORNING
     Route: 058
  18. PROTAPHANE [Concomitant]
     Dosage: 28 IE IN THE EVENING
     Route: 058
  19. ARANESP [Concomitant]
     Dosage: STRENGTH: 40 MICRGRAMS (1 IN THE MORNING), EVERY FRIDAY
     Route: 058

REACTIONS (10)
  - Foot fracture [Unknown]
  - Confusional state [Recovered/Resolved]
  - Disturbance in attention [Recovered/Resolved]
  - Fall [Recovered/Resolved]
  - Fracture [Recovered/Resolved]
  - Fatigue [Recovered/Resolved]
  - Stupor [Recovered/Resolved]
  - Somnolence [Unknown]
  - Overdose [Unknown]
  - Inappropriate schedule of drug administration [Unknown]
